FAERS Safety Report 12694890 (Version 1)
Quarter: 2016Q3

REPORT INFORMATION
  Report Type: Spontaneous
  Country: GB (occurrence: GB)
  Receive Date: 20160829
  Receipt Date: 20160829
  Transmission Date: 20161109
  Serious: Yes (Hospitalization)
  Sender: FDA-Public Use
  Company Number: GB-TEVA-687163ACC

PATIENT
  Age: 69 Year
  Sex: Female
  Weight: 101 kg

DRUGS (10)
  1. CLOMIPRAMINE [Suspect]
     Active Substance: CLOMIPRAMINE
  2. METFORMIN [Suspect]
     Active Substance: METFORMIN HYDROCHLORIDE
  3. LITHIUM CARBONATE. [Suspect]
     Active Substance: LITHIUM CARBONATE
     Dosage: 600 MILLIGRAM DAILY; AT NIGHT
     Route: 048
     Dates: end: 20160801
  4. ATORVASTATIN [Concomitant]
     Active Substance: ATORVASTATIN
  5. OLANZAPINE. [Suspect]
     Active Substance: OLANZAPINE
  6. ARIPIPRAZOLE. [Suspect]
     Active Substance: ARIPIPRAZOLE
  7. LANTUS [Concomitant]
     Active Substance: INSULIN GLARGINE
  8. NOVORAPID [Concomitant]
     Active Substance: INSULIN ASPART
  9. OMEPRAZOLE. [Concomitant]
     Active Substance: OMEPRAZOLE
  10. WARFARIN [Suspect]
     Active Substance: WARFARIN

REACTIONS (5)
  - Acute kidney injury [Recovering/Resolving]
  - Overdose [Unknown]
  - Polyuria [Unknown]
  - Hypotension [Unknown]
  - International normalised ratio abnormal [Unknown]

NARRATIVE: CASE EVENT DATE: 20160803
